FAERS Safety Report 25410969 (Version 1)
Quarter: 2025Q2

REPORT INFORMATION
  Report Type: Report from Study
  Country: US (occurrence: US)
  Receive Date: 20250609
  Receipt Date: 20250609
  Transmission Date: 20250717
  Serious: No
  Sender: ACADIA PHARMACEUTICALS
  Company Number: US-ACADIA PHARMACEUTICALS INC.-ACA-2025-PIM-006671

PATIENT
  Sex: Male

DRUGS (18)
  1. NUPLAZID [Suspect]
     Active Substance: PIMAVANSERIN TARTRATE
     Indication: Parkinson^s disease
     Dosage: 34 MILLIGRAM, QD
     Route: 048
  2. CARBIDOPA\LEVODOPA [Concomitant]
     Active Substance: CARBIDOPA\LEVODOPA
  3. COENZYME Q10 [Concomitant]
     Active Substance: DIETARY SUPPLEMENT\UBIDECARENONE
  4. DIGOXIN [Concomitant]
     Active Substance: DIGOXIN
  5. DOCUSATE SOD [Concomitant]
  6. DUTASTERIDE [Concomitant]
     Active Substance: DUTASTERIDE
  7. FARXIGA [Concomitant]
     Active Substance: DAPAGLIFLOZIN PROPANEDIOL
  8. FOLIC ACID [Concomitant]
     Active Substance: FOLIC ACID
  9. ISOSORBIDE MONONITRATE [Concomitant]
     Active Substance: ISOSORBIDE MONONITRATE
  10. MAGNESIUM [Concomitant]
     Active Substance: MAGNESIUM
  11. METAMUCIL [INULIN] [Concomitant]
  12. ACETYLCYSTEINE [Concomitant]
     Active Substance: ACETYLCYSTEINE
  13. OLMESARTAN MEDOXOMIL [Concomitant]
     Active Substance: OLMESARTAN MEDOXOMIL
  14. OMEGA-3 FATTY ACIDS [Concomitant]
     Active Substance: OMEGA-3 FATTY ACIDS
  15. REXULTI [Concomitant]
     Active Substance: BREXPIPRAZOLE
  16. TAMSULOSIN [Concomitant]
     Active Substance: TAMSULOSIN
  17. VITAMIN B12 [Concomitant]
     Active Substance: CYANOCOBALAMIN
  18. VITAMIN E [Concomitant]
     Active Substance: .ALPHA.-TOCOPHEROL

REACTIONS (1)
  - Product dose omission in error [Unknown]
